FAERS Safety Report 4787086-X (Version None)
Quarter: 2005Q4

REPORT INFORMATION
  Report Type: 
  Country: None (occurrence: None)
  Receive Date: 20051004
  Receipt Date: 20050520
  Transmission Date: 20060501
  Serious: Yes (Death, Other)
  Sender: FDA-Public Use
  Company Number: PHEH2005US05800

PATIENT
  Age: 64 Year
  Sex: Female
  Weight: 54 kg

DRUGS (5)
  1. ZOMETA [Suspect]
     Indication: MULTIPLE MYELOMA
     Dosage: 4 MG EVERY 4 WEEKS
     Dates: start: 20031001, end: 20040801
  2. DECADRON [Concomitant]
     Dosage: 40MG QD 2 DAYS QWK
  3. VELCADE [Concomitant]
     Indication: MULTIPLE MYELOMA
     Dosage: 2MG UNK
     Dates: start: 20040901, end: 20041001
  4. VINCRISTINE + ADRIAMYCIN + DEXAMETHASONE [Concomitant]
     Indication: MULTIPLE MYELOMA
     Dates: start: 20020101
  5. THALIDOMIDE [Concomitant]
     Indication: MULTIPLE MYELOMA
     Dosage: 100MG QD
     Dates: start: 20031001, end: 20040501

REACTIONS (4)
  - DEATH [None]
  - DENTAL CARE [None]
  - OSTEONECROSIS [None]
  - TOOTH ABSCESS [None]
